FAERS Safety Report 5796814-6 (Version None)
Quarter: 2008Q2

REPORT INFORMATION
  Report Type: 
  Country: None (occurrence: None)
  Receive Date: 20080630
  Receipt Date: 20080630
  Transmission Date: 20081010
  Serious: Yes (Hospitalization)
  Sender: FDA-Public Use
  Company Number: None

PATIENT
  Age: 72 Year
  Sex: Male
  Weight: 74.95 kg

DRUGS (2)
  1. WARFARIN SODIUM [Suspect]
     Dosage: 5 MG EVERY DAY PO   2 OTHER PO
     Route: 048
     Dates: start: 20080103, end: 20080517
  2. WARFARIN SODIUM [Suspect]
     Dosage: 5 MG EVERY DAY PO   2 OTHER PO
     Route: 048
     Dates: start: 20080212, end: 20080517

REACTIONS (2)
  - GASTROINTESTINAL HAEMORRHAGE [None]
  - HAEMORRHAGE [None]
